FAERS Safety Report 6367298-4 (Version None)
Quarter: 2009Q3

REPORT INFORMATION
  Report Type: 
  Country: None (occurrence: None)
  Receive Date: 20090921
  Receipt Date: 20090729
  Transmission Date: 20100115
  Serious: No
  Sender: FDA-Public Use
  Company Number: US-BAYER-200926370NA

PATIENT
  Age: 27 Year
  Sex: Female

DRUGS (2)
  1. CLIMARA PRO [Suspect]
     Indication: CONVULSION
  2. CLIMARA [Suspect]
     Indication: CONVULSION

REACTIONS (1)
  - COMPLICATION OF DEVICE REMOVAL [None]
